FAERS Safety Report 9575260 (Version 2)
Quarter: 2013Q4

REPORT INFORMATION
  Report Type: Spontaneous
  Country: PL (occurrence: PL)
  Receive Date: 20131001
  Receipt Date: 20131125
  Transmission Date: 20140711
  Serious: Yes (Other)
  Sender: FDA-Public Use
  Company Number: PL-GLAXOSMITHKLINE-B0926450A

PATIENT
  Sex: Female
  Weight: 66 kg

DRUGS (4)
  1. VOTRIENT [Suspect]
     Indication: RENAL CELL CARCINOMA
     Dosage: 880MG PER DAY
     Route: 048
     Dates: start: 20130626
  2. AMLODIPINE + BENAZEPRIL [Concomitant]
     Indication: HYPERTENSION
  3. PRAMOLAN [Concomitant]
     Indication: HYPERTENSION
  4. MILURIT [Concomitant]

REACTIONS (1)
  - Polyneuropathy [Recovering/Resolving]
